FAERS Safety Report 6091823-4 (Version None)
Quarter: 2009Q1

REPORT INFORMATION
  Report Type: 
  Country: None (occurrence: None)
  Receive Date: 20090225
  Receipt Date: 20080717
  Transmission Date: 20090719
  Serious: No
  Sender: FDA-Public Use
  Company Number: A0738197A

PATIENT
  Age: 46 Year
  Sex: Female

DRUGS (2)
  1. VALTREX [Suspect]
     Indication: GENITAL HERPES
     Dosage: 1G TWICE PER DAY
     Route: 048
  2. NIACIN [Suspect]
     Indication: BLOOD CHOLESTEROL INCREASED
     Route: 065

REACTIONS (2)
  - PARAESTHESIA [None]
  - PRURITUS [None]
